FAERS Safety Report 8986790 (Version 1)
Quarter: 2012Q4

REPORT INFORMATION
  Report Type: 
  Country: US (occurrence: US)
  Receive Date: 20121227
  Receipt Date: 20121227
  Transmission Date: 20130627
  Serious: Yes (Life-Threatening, Other)
  Sender: FDA-Public Use
  Company Number: PHEH2012US025309

PATIENT
  Sex: Male

DRUGS (1)
  1. VALSARTAN + HCT [Suspect]
     Indication: BLOOD PRESSURE
     Route: 048

REACTIONS (9)
  - Blood potassium decreased [Unknown]
  - Blood magnesium decreased [Unknown]
  - Convulsion [Unknown]
  - Mechanical urticaria [Unknown]
  - Urticaria [Unknown]
  - Malaise [Unknown]
  - Sleep disorder [Unknown]
  - Muscle spasms [Unknown]
  - Blood sodium decreased [Unknown]
